FAERS Safety Report 8423256-7 (Version None)
Quarter: 2012Q2

REPORT INFORMATION
  Report Type: 
  Country: None (occurrence: None)
  Receive Date: 20120323
  Receipt Date: 20110722
  Transmission Date: 20120825
  Serious: Yes (Other)
  Sender: FDA-Public Use
  Company Number: 163-21880-11022298

PATIENT
  Age: 73 Year
  Sex: Male

DRUGS (4)
  1. DEXAMETHASONE [Concomitant]
  2. CYCLOPHOSPHAMIDE [Concomitant]
  3. ENOXAPARIN [Suspect]
     Indication: PRODUCT USED FOR UNKNOWN INDICATION
  4. REVLIMID [Suspect]
     Indication: MULTIPLE MYELOMA
     Dosage: 5 MG, DAILY 1-21, PO
     Route: 048
     Dates: start: 20101201

REACTIONS (4)
  - RASH ERYTHEMATOUS [None]
  - OEDEMA PERIPHERAL [None]
  - RASH VESICULAR [None]
  - SWELLING FACE [None]
